FAERS Safety Report 9840284 (Version 1)
Quarter: 2013Q4

REPORT INFORMATION
  Report Type: Spontaneous
  Country: US (occurrence: None)
  Receive Date: 20131211
  Receipt Date: 20131211
  Transmission Date: 20140711
  Serious: Yes (Other)
  Sender: FDA-Public Use
  Company Number: ALL1-2012-05033

PATIENT
  Age: 11 Year
  Sex: Female
  Weight: 45.4 kg

DRUGS (4)
  1. VYVANSE [Suspect]
     Indication: ATTENTION DEFICIT/HYPERACTIVITY DISORDER
     Route: 048
     Dates: end: 201209
  2. INTUNIV [Suspect]
     Indication: ATTENTION DEFICIT/HYPERACTIVITY DISORDER
     Route: 048
     Dates: start: 2012, end: 2012
  3. FOCALIN [Suspect]
  4. XOPENEX(LEVOSALBUTAMOL HYDROCHLORIDE) [Concomitant]

REACTIONS (3)
  - Abnormal loss of weight [None]
  - Drug effect decreased [None]
  - Drug ineffective [None]
